FAERS Safety Report 8551615-0 (Version None)
Quarter: 2012Q3

REPORT INFORMATION
  Report Type: 
  Country: None (occurrence: None)
  Receive Date: 20120730
  Receipt Date: 20120726
  Transmission Date: 20120928
  Serious: Yes (Death)
  Sender: FDA-Public Use
  Company Number: US-PFIZER INC-2012182043

PATIENT
  Sex: Male
  Weight: 59 kg

DRUGS (2)
  1. ACCUPRIL [Concomitant]
     Indication: HYPERTENSION
     Dosage: UNK
  2. LIPITOR [Suspect]
     Indication: HYPERCHOLESTEROLAEMIA
     Dosage: 10 MG, 2X/DAY
     Route: 048
     Dates: start: 19970101

REACTIONS (1)
  - HEPATIC NEOPLASM MALIGNANT [None]
